FAERS Safety Report 8053124-4 (Version None)
Quarter: 2011Q4

REPORT INFORMATION
  Report Type: 
  Country: None (occurrence: None)
  Receive Date: 20111213
  Receipt Date: 20110405
  Transmission Date: 20120403
  Serious: No
  Sender: FDA-Public Use
  Company Number: 2011SP015363

PATIENT
  Age: 49 Year
  Sex: Female

DRUGS (4)
  1. SAPHRIS [Suspect]
     Indication: SCHIZOPHRENIFORM DISORDER
     Dosage: 5 MG;QD;SL ; 0.2 DF;SL
     Route: 060
     Dates: start: 20110303
  2. SAPHRIS [Suspect]
     Indication: SCHIZOPHRENIA
     Dosage: 5 MG;QD;SL ; 0.2 DF;SL
     Route: 060
     Dates: start: 20110303
  3. SAPHRIS [Suspect]
     Indication: SCHIZOPHRENIFORM DISORDER
     Dosage: 5 MG;QD;SL ; 0.2 DF;SL
     Route: 060
     Dates: end: 20110307
  4. SAPHRIS [Suspect]
     Indication: SCHIZOPHRENIA
     Dosage: 5 MG;QD;SL ; 0.2 DF;SL
     Route: 060
     Dates: end: 20110307

REACTIONS (4)
  - HYPOAESTHESIA [None]
  - WRONG TECHNIQUE IN DRUG USAGE PROCESS [None]
  - UNDERDOSE [None]
  - INAPPROPRIATE SCHEDULE OF DRUG ADMINISTRATION [None]
